FAERS Safety Report 25220466 (Version 1)
Quarter: 2025Q2

REPORT INFORMATION
  Report Type: Spontaneous
  Country: US (occurrence: US)
  Receive Date: 20250421
  Receipt Date: 20250421
  Transmission Date: 20250717
  Serious: No
  Sender: ROCHE
  Company Number: US-ROCHE-10000263437

PATIENT
  Age: 6 Year
  Sex: Male

DRUGS (5)
  1. XOLAIR PFS [Suspect]
     Active Substance: OMALIZUMAB
     Indication: Food allergy
     Route: 058
     Dates: start: 202407
  2. XOLAIR PFS [Suspect]
     Active Substance: OMALIZUMAB
     Indication: Milk allergy
  3. XOLAIR PFS [Suspect]
     Active Substance: OMALIZUMAB
     Indication: Food allergy
  4. XOLAIR PFS [Suspect]
     Active Substance: OMALIZUMAB
     Indication: Food allergy
  5. DUPIXENT [Concomitant]
     Active Substance: DUPILUMAB

REACTIONS (1)
  - Ill-defined disorder [Unknown]
